FAERS Safety Report 7283544-7 (Version None)
Quarter: 2011Q1

REPORT INFORMATION
  Report Type: 
  Country: None (occurrence: None)
  Receive Date: 20110209
  Receipt Date: 20110127
  Transmission Date: 20110831
  Serious: Yes (Other)
  Sender: FDA-Public Use
  Company Number: DZ-GENENTECH-312756

PATIENT
  Sex: Female

DRUGS (2)
  1. MABTHERA [Suspect]
     Dosage: UNK
     Route: 042
     Dates: start: 20110127, end: 20110127
  2. MABTHERA [Suspect]
     Indication: RHEUMATOID ARTHRITIS
     Dosage: 1 G, UNK
     Route: 042
     Dates: start: 20110101, end: 20110101

REACTIONS (7)
  - TACHYCARDIA [None]
  - HYPERSENSITIVITY [None]
  - GENERALISED OEDEMA [None]
  - HEART RATE IRREGULAR [None]
  - URTICARIA [None]
  - LOSS OF CONSCIOUSNESS [None]
  - HYPOTENSION [None]
